FAERS Safety Report 4776229-X (Version None)
Quarter: 2005Q3

REPORT INFORMATION
  Report Type: 
  Country: None (occurrence: None)
  Receive Date: 20050922
  Receipt Date: 20050914
  Transmission Date: 20060218
  Serious: Yes (Other)
  Sender: FDA-Public Use
  Company Number: US-JNJFOC-20050903630

PATIENT
  Age: 54 Year
  Sex: Female
  Weight: 70.31 kg

DRUGS (9)
  1. DOXIL [Suspect]
     Route: 042
  2. DOXIL [Suspect]
     Route: 042
  3. CARAFATE [Concomitant]
  4. NEURONTIN [Concomitant]
  5. ACIPHEX [Concomitant]
  6. INDOMETHACIN [Concomitant]
     Indication: PREMEDICATION
  7. DIPHENHYDRAMINE HCL [Concomitant]
     Indication: PREMEDICATION
  8. KYTRIL [Concomitant]
     Indication: PREMEDICATION
  9. STEROID [Concomitant]
     Indication: PREMEDICATION
     Route: 042

REACTIONS (5)
  - BLOOD PRESSURE INCREASED [None]
  - DIFFICULTY IN WALKING [None]
  - DIZZINESS [None]
  - INFUSION RELATED REACTION [None]
  - MOBILITY DECREASED [None]
